FAERS Safety Report 6056231-0 (Version None)
Quarter: 2009Q1

REPORT INFORMATION
  Report Type: 
  Country: None (occurrence: None)
  Receive Date: 20090123
  Receipt Date: 20090123
  Transmission Date: 20090719
  Serious: Yes (Hospitalization, Other)
  Sender: FDA-Public Use
  Company Number: None

PATIENT
  Age: 47 Year
  Sex: Male
  Weight: 92.9874 kg

DRUGS (2)
  1. COMPAZINE [Suspect]
     Indication: DIARRHOEA
     Dosage: 25MG TWICE A DAY RECTAL
     Route: 054
     Dates: start: 20080120, end: 20080121
  2. COMPAZINE [Suspect]
     Indication: VOMITING
     Dosage: 25MG TWICE A DAY RECTAL
     Route: 054
     Dates: start: 20080120, end: 20080121

REACTIONS (7)
  - HEART RATE INCREASED [None]
  - HYPERHIDROSIS [None]
  - MENTAL STATUS CHANGES [None]
  - MUSCULOSKELETAL STIFFNESS [None]
  - PYREXIA [None]
  - TRANSIENT ISCHAEMIC ATTACK [None]
  - TRISMUS [None]
